FAERS Safety Report 15462092 (Version 5)
Quarter: 2025Q3

REPORT INFORMATION
  Report Type: Spontaneous
  Country: EU (occurrence: EU)
  Receive Date: 20181004
  Receipt Date: 20250903
  Transmission Date: 20251021
  Serious: Yes (Life-Threatening, Hospitalization, Other)
  Sender: AUROBINDO
  Company Number: EU-AUROBINDO-AUR-APL-2015-03074

PATIENT
  Age: 20 Year
  Sex: Male

DRUGS (8)
  1. ASPIRIN [Suspect]
     Active Substance: ASPIRIN
     Indication: Product used for unknown indication
     Route: 065
  2. IBUPROFEN [Suspect]
     Active Substance: IBUPROFEN
     Indication: Product used for unknown indication
     Route: 065
  3. PREGABALIN [Suspect]
     Active Substance: PREGABALIN
     Indication: Focal dyscognitive seizures
     Route: 065
  4. PREGABALIN [Suspect]
     Active Substance: PREGABALIN
     Indication: Dyskinesia
  5. PREGABALIN [Suspect]
     Active Substance: PREGABALIN
     Indication: Depression
  6. IBUPROFEN [Suspect]
     Active Substance: IBUPROFEN
     Indication: Product used for unknown indication
     Route: 065
  7. ALCOHOL [Suspect]
     Active Substance: ALCOHOL
     Indication: Product used for unknown indication
     Route: 065
  8. TIAPRIDE HYDROCHLORIDE [Concomitant]
     Active Substance: TIAPRIDE HYDROCHLORIDE
     Indication: Dyskinesia
     Route: 065
     Dates: start: 201307, end: 201310

REACTIONS (17)
  - Sleep disorder [Recovered/Resolved]
  - Suicide attempt [Recovered/Resolved]
  - Intentional overdose [Recovered/Resolved]
  - Depressed mood [Recovered/Resolved]
  - Major depression [Unknown]
  - Depression [Recovered/Resolved]
  - Intentional product misuse [Recovered/Resolved]
  - Suicidal ideation [Recovered/Resolved]
  - Feeling of despair [Recovering/Resolving]
  - Apathy [Recovered/Resolved]
  - Anxiety [Recovered/Resolved]
  - Toxicity to various agents [Unknown]
  - Depressive symptom [Recovering/Resolving]
  - Overdose [Unknown]
  - Thinking abnormal [Unknown]
  - Condition aggravated [Recovered/Resolved]
  - Alcohol interaction [Recovered/Resolved]

NARRATIVE: CASE EVENT DATE: 20131001
